FAERS Safety Report 9601989 (Version 3)
Quarter: 2013Q4

REPORT INFORMATION
  Report Type: Spontaneous
  Country: GB (occurrence: GB)
  Receive Date: 20131007
  Receipt Date: 20131113
  Transmission Date: 20140711
  Serious: Yes (Death, Hospitalization, Other)
  Sender: FDA-Public Use
  Company Number: PHFR2013GB005602

PATIENT
  Age: 66 Year
  Sex: Female

DRUGS (4)
  1. CLOZARIL [Suspect]
     Indication: SCHIZOPHRENIA
     Route: 048
     Dates: start: 20040902
  2. SIMVASTATIN [Concomitant]
     Indication: BLOOD CHOLESTEROL INCREASED
     Dosage: 40 MG, DIALY
     Route: 048
  3. THYROXINE [Concomitant]
     Indication: HYPERTHYROIDISM
     Dosage: 150 MG/KG, DAILY
     Route: 048
  4. RAMIPRIL [Concomitant]
     Indication: HYPERTENSION
     Dosage: 2.5 MG, DAILY
     Route: 048

REACTIONS (3)
  - Breast cancer metastatic [Fatal]
  - Metastases to bone [Fatal]
  - White blood cell count decreased [Recovered/Resolved]
